FAERS Safety Report 23954889 (Version 2)
Quarter: 2025Q2

REPORT INFORMATION
  Report Type: Spontaneous
  Country: US (occurrence: US)
  Receive Date: 20240610
  Receipt Date: 20250505
  Transmission Date: 20250717
  Serious: No
  Sender: BIOGEN
  Company Number: US-BIOGEN-2016BI00257925

PATIENT
  Sex: Female

DRUGS (1)
  1. TECFIDERA [Suspect]
     Active Substance: DIMETHYL FUMARATE
     Indication: Multiple sclerosis
     Dosage: START DATE ALSO REPORTED AS 03-MAR-2017
     Route: 050
     Dates: start: 20130430, end: 20201216

REACTIONS (4)
  - Multiple sclerosis [Unknown]
  - COVID-19 [Unknown]
  - Flushing [Unknown]
  - Gastrointestinal disorder [Unknown]
